FAERS Safety Report 7605378-3 (Version None)
Quarter: 2011Q3

REPORT INFORMATION
  Report Type: 
  Country: None (occurrence: None)
  Receive Date: 20110713
  Receipt Date: 20110705
  Transmission Date: 20111222
  Serious: Yes (Hospitalization)
  Sender: FDA-Public Use
  Company Number: SE-CEPHALON-2011003175

PATIENT
  Sex: Male
  Weight: 106 kg

DRUGS (2)
  1. RITUXIMAB [Suspect]
     Route: 042
     Dates: start: 20110516
  2. BENDAMUSTINE HCL [Suspect]
     Route: 042
     Dates: start: 20110516

REACTIONS (1)
  - GASTROINTESTINAL HAEMORRHAGE [None]
